FAERS Safety Report 7251703-5 (Version None)
Quarter: 2011Q1

REPORT INFORMATION
  Report Type: 
  Country: None (occurrence: None)
  Receive Date: 20110128
  Receipt Date: 20110118
  Transmission Date: 20110831
  Serious: Yes (Hospitalization, Other)
  Sender: FDA-Public Use
  Company Number: DE-ELI_LILLY_AND_COMPANY-DE201101004385

PATIENT
  Age: 48 Year
  Sex: Female

DRUGS (10)
  1. CYMBALTA [Suspect]
     Dosage: 60 MG, UNK
     Route: 048
     Dates: start: 20080101, end: 20100101
  2. PREDNISOLONE [Concomitant]
  3. IMUREK [Concomitant]
  4. IBUPROFEN [Concomitant]
  5. TRIMIPRAMINE [Concomitant]
  6. CYMBALTA [Suspect]
     Indication: DEPRESSION
     Dosage: 30 MG, UNK
     Route: 048
     Dates: start: 20070101, end: 20080101
  7. HYDROXYCHLOROQUINE [Concomitant]
  8. AZATHIOPRIN [Concomitant]
  9. CYMBALTA [Suspect]
     Dosage: 90 MG, UNK
     Route: 048
     Dates: start: 20100101
  10. OXYGESIC [Concomitant]

REACTIONS (7)
  - CONTUSION [None]
  - DYSPNOEA [None]
  - HAEMATOCRIT DECREASED [None]
  - C-REACTIVE PROTEIN INCREASED [None]
  - HAEMOGLOBIN DECREASED [None]
  - LEUKOPENIA [None]
  - PLATELET COUNT DECREASED [None]
